FAERS Safety Report 19021001 (Version 1)
Quarter: 2021Q1

REPORT INFORMATION
  Report Type: Spontaneous
  Country: JP (occurrence: JP)
  Receive Date: 20210317
  Receipt Date: 20210317
  Transmission Date: 20210420
  Serious: Yes (Other)
  Sender: FDA-Public Use
  Company Number: JP-PFIZER INC-2021260556

PATIENT
  Age: 70 Year
  Sex: Male

DRUGS (3)
  1. LAMOTRIGINE. [Concomitant]
     Active Substance: LAMOTRIGINE
  2. OLANZAPINE. [Concomitant]
     Active Substance: OLANZAPINE
  3. EFFEXOR [Suspect]
     Active Substance: VENLAFAXINE HYDROCHLORIDE
     Dosage: UNK
     Route: 048

REACTIONS (4)
  - Withdrawal syndrome [Unknown]
  - Persecutory delusion [Unknown]
  - Delirium [Recovering/Resolving]
  - Aggression [Unknown]
